FAERS Safety Report 6721695-3 (Version None)
Quarter: 2010Q2

REPORT INFORMATION
  Report Type: 
  Country: None (occurrence: None)
  Receive Date: 20100510
  Receipt Date: 20100428
  Transmission Date: 20101027
  Serious: Yes (Hospitalization)
  Sender: FDA-Public Use
  Company Number: M1002092

PATIENT
  Age: 49 Year
  Sex: Female

DRUGS (1)
  1. KLOR-CON M10 [Suspect]
     Indication: MINERAL SUPPLEMENTATION
     Dosage: 2 IN 1 D, ORAL
     Route: 048
     Dates: start: 20090401, end: 20100401

REACTIONS (2)
  - BLOOD POTASSIUM DECREASED [None]
  - MEDICATION RESIDUE [None]
